FAERS Safety Report 10306714 (Version 1)
Quarter: 2014Q3

REPORT INFORMATION
  Report Type: Spontaneous
  Country: US (occurrence: US)
  Receive Date: 20140715
  Receipt Date: 20140715
  Transmission Date: 20150326
  Serious: No
  Sender: FDA-Public Use
  Company Number: US-PFIZER INC-2014192859

PATIENT
  Age: 52 Year
  Sex: Male
  Weight: 95.69 kg

DRUGS (1)
  1. LYRICA [Suspect]
     Active Substance: PREGABALIN
     Indication: PAIN
     Dosage: 150 MG, 3X/DAY
     Route: 048
     Dates: start: 2014

REACTIONS (2)
  - Constipation [Unknown]
  - Dyspepsia [Unknown]

NARRATIVE: CASE EVENT DATE: 2014
